FAERS Safety Report 9762696 (Version 2)
Quarter: 2014Q1

REPORT INFORMATION
  Report Type: Spontaneous
  Country: US (occurrence: US)
  Receive Date: 20131216
  Receipt Date: 20140319
  Transmission Date: 20141002
  Serious: No
  Sender: FDA-Public Use
  Company Number: US-BIOGENIDEC-2013BI104755

PATIENT
  Age: 49 Year
  Sex: Male

DRUGS (7)
  1. TECFIDERA [Suspect]
     Indication: MULTIPLE SCLEROSIS
     Route: 048
     Dates: start: 20131011
  2. LIPITOR [Concomitant]
  3. MECLIZINE HCL [Concomitant]
  4. OMEPRAZOLE [Concomitant]
  5. VALIUM [Concomitant]
  6. WELLBUTRIN SR [Concomitant]
  7. ZANAFLEX [Concomitant]

REACTIONS (1)
  - Rhinorrhoea [Unknown]
